FAERS Safety Report 8418043-X (Version None)
Quarter: 2012Q2

REPORT INFORMATION
  Report Type: 
  Country: None (occurrence: None)
  Receive Date: 20120531
  Receipt Date: 20120522
  Transmission Date: 20120825
  Serious: Yes (Hospitalization, Other)
  Sender: FDA-Public Use
  Company Number: AUR-APL-2012-02071

PATIENT
  Age: 29 Year
  Sex: Female

DRUGS (2)
  1. TRIMETHOPRIM + SULFAMETHOXAZOLE [Suspect]
     Indication: UPPER RESPIRATORY TRACT INFECTION
     Dosage: UNKNOWN
  2. EPINEPHRINE [Suspect]
     Indication: ANAPHYLACTIC REACTION
     Dosage: 2 MG, INTRAMUSCULAR
     Route: 030

REACTIONS (18)
  - ABDOMINAL PAIN [None]
  - MYALGIA [None]
  - PLEURITIC PAIN [None]
  - BLOOD POTASSIUM DECREASED [None]
  - BLOOD CREATINE PHOSPHOKINASE INCREASED [None]
  - TOXICITY TO VARIOUS AGENTS [None]
  - BLOOD SODIUM DECREASED [None]
  - BLOOD GLUCOSE INCREASED [None]
  - RIGHT VENTRICULAR SYSTOLIC PRESSURE INCREASED [None]
  - HYPOTENSION [None]
  - ELECTROCARDIOGRAM ST SEGMENT ABNORMAL [None]
  - INCORRECT DOSE ADMINISTERED [None]
  - INCORRECT ROUTE OF DRUG ADMINISTRATION [None]
  - HEADACHE [None]
  - ERYTHEMA [None]
  - HEART RATE INCREASED [None]
  - SINUS BRADYCARDIA [None]
  - TRICUSPID VALVE INCOMPETENCE [None]
